FAERS Safety Report 15431504 (Version 2)
Quarter: 2019Q1

REPORT INFORMATION
  Report Type: Spontaneous
  Country: US (occurrence: US)
  Receive Date: 20180926
  Receipt Date: 20190130
  Transmission Date: 20190417
  Serious: No
  Sender: FDA-Public Use
  Company Number: US-PFIZER INC-2018388359

PATIENT
  Age: 38 Year
  Sex: Female
  Weight: 96.15 kg

DRUGS (21)
  1. DOCETAXEL. [Suspect]
     Active Substance: DOCETAXEL
     Dosage: 108.15 MG, CYCLIC (EVERY THREE WEEKS, 06 CYCLES)
     Dates: end: 20150831
  2. TAXOTERE [Suspect]
     Active Substance: DOCETAXEL
     Dosage: 131.33 MG, CYCLIC (EVERY THREE WEEKS, 06 CYCLES)
  3. PARAPLATIN [Concomitant]
     Active Substance: CARBOPLATIN
     Indication: CHEMOTHERAPY
     Dosage: UNK
  4. ALLEGRA-D [Concomitant]
     Active Substance: FEXOFENADINE\PSEUDOEPHEDRINE
     Indication: MULTIPLE ALLERGIES
     Dosage: UNK, AS NEEDED
  5. DOCETAXEL. [Suspect]
     Active Substance: DOCETAXEL
     Dosage: 108.15 MG, CYCLIC (EVERY THREE WEEKS, 06 CYCLES)
     Dates: end: 20150831
  6. TAXOTERE [Suspect]
     Active Substance: DOCETAXEL
     Dosage: 123.6 MG, CYCLIC (EVERY THREE WEEKS, 06 CYCLES)
  7. TAXOTERE [Suspect]
     Active Substance: DOCETAXEL
     Dosage: 108.15 MG, CYCLIC (EVERY THREE WEEKS, 06 CYCLES)
     Dates: end: 20150831
  8. VITAMIN B12 [Concomitant]
     Active Substance: CYANOCOBALAMIN
     Dosage: UNK
     Dates: start: 200706
  9. VITAMIN D [Concomitant]
     Active Substance: CHOLECALCIFEROL
     Dosage: UNK
     Dates: start: 201103
  10. ALLEGRA [Concomitant]
     Active Substance: FEXOFENADINE HYDROCHLORIDE
     Dosage: UNK
  11. PROZAC [Concomitant]
     Active Substance: FLUOXETINE HYDROCHLORIDE
     Dosage: UNK
     Dates: start: 201504, end: 201601
  12. DOCETAXEL. [Suspect]
     Active Substance: DOCETAXEL
     Dosage: 123.6 MG, CYCLIC (EVERY THREE WEEKS, 06 CYCLES)
  13. DOCETAXEL. [Suspect]
     Active Substance: DOCETAXEL
     Dosage: 131.33 MG, CYCLIC (EVERY THREE WEEKS, 06 CYCLES)
  14. TAXOTERE [Suspect]
     Active Substance: DOCETAXEL
     Indication: BREAST CANCER FEMALE
     Dosage: 154.5 MG, CYCLIC (EVERY THREE WEEKS, 06 CYCLES)
     Dates: start: 20150518
  15. DOCETAXEL. [Suspect]
     Active Substance: DOCETAXEL
     Dosage: 131.33 MG, CYCLIC (EVERY THREE WEEKS, 06 CYCLES)
  16. DOCETAXEL. [Suspect]
     Active Substance: DOCETAXEL
     Indication: BREAST CANCER FEMALE
     Dosage: 154.5 MG, CYCLIC (EVERY THREE WEEKS, 06 CYCLES)
     Dates: start: 20150518
  17. DOCETAXEL. [Suspect]
     Active Substance: DOCETAXEL
     Dosage: 123.6 MG, CYCLIC (EVERY THREE WEEKS, 06 CYCLES)
  18. ARIMIDEX [Concomitant]
     Active Substance: ANASTROZOLE
     Indication: HORMONE THERAPY
     Dosage: UNK
     Dates: start: 201511, end: 201610
  19. DOCETAXEL. [Suspect]
     Active Substance: DOCETAXEL
     Indication: BREAST CANCER FEMALE
     Dosage: 154.5 MG, CYCLIC (EVERY THREE WEEKS, 06 CYCLES)
     Dates: start: 20150518
  20. LISINOPRIL. [Concomitant]
     Active Substance: LISINOPRIL
     Dosage: UNK
     Dates: start: 2007
  21. LETROZOLE. [Concomitant]
     Active Substance: LETROZOLE
     Indication: HORMONE THERAPY
     Dosage: UNK

REACTIONS (7)
  - Hair texture abnormal [Not Recovered/Not Resolved]
  - Hair disorder [Not Recovered/Not Resolved]
  - Madarosis [Not Recovered/Not Resolved]
  - Anxiety [Unknown]
  - Hair colour changes [Not Recovered/Not Resolved]
  - Depression [Unknown]
  - Alopecia [Not Recovered/Not Resolved]

NARRATIVE: CASE EVENT DATE: 201506
